FAERS Safety Report 25168633 (Version 1)
Quarter: 2025Q2

REPORT INFORMATION
  Report Type: Spontaneous
  Country: IT (occurrence: IT)
  Receive Date: 20250407
  Receipt Date: 20250407
  Transmission Date: 20250716
  Serious: Yes (Other)
  Sender: BIOVITRUM
  Company Number: IT-BIOVITRUM-2025-IT-004637

PATIENT
  Age: 66 Year
  Sex: Female

DRUGS (2)
  1. ANAKINRA [Suspect]
     Active Substance: ANAKINRA
     Indication: Still^s disease
  2. ANAKINRA [Suspect]
     Active Substance: ANAKINRA
     Indication: Haemophagocytic lymphohistiocytosis

REACTIONS (5)
  - Off label use [Recovered/Resolved]
  - Pancytopenia [Recovering/Resolving]
  - Serum ferritin increased [Recovering/Resolving]
  - Blood lactate dehydrogenase increased [Recovering/Resolving]
  - Hypertriglyceridaemia [Recovering/Resolving]
